FAERS Safety Report 11167673 (Version 1)
Quarter: 2015Q2

REPORT INFORMATION
  Report Type: Spontaneous
  Country: US (occurrence: None)
  Receive Date: 20150515
  Receipt Date: 20150515
  Transmission Date: 20150821
  Serious: Yes (Hospitalization, Other)
  Sender: FDA-Public Use
  Company Number: 2014023295

PATIENT
  Age: 27 Year
  Sex: Female

DRUGS (4)
  1. METHOTREXATE (METHOTREXATE) [Concomitant]
     Active Substance: METHOTREXATE
  2. DILAUDID [Concomitant]
     Active Substance: HYDROMORPHONE HYDROCHLORIDE
  3. HYDROCODONE (HYDROCODONE BITARTRATE) [Concomitant]
     Active Substance: HYDROCODONE BITARTRATE
  4. CIMZIA [Suspect]
     Active Substance: CERTOLIZUMAB PEGOL
     Indication: CROHN^S DISEASE
     Route: 058
     Dates: end: 201412

REACTIONS (6)
  - Small intestinal obstruction [None]
  - Somnolence [None]
  - Crohn^s disease [None]
  - Off label use [None]
  - Sepsis [None]
  - Incorrect product storage [None]

NARRATIVE: CASE EVENT DATE: 2014
